FAERS Safety Report 22081061 (Version 2)
Quarter: 2023Q1

REPORT INFORMATION
  Report Type: Spontaneous
  Country: US (occurrence: US)
  Receive Date: 20230309
  Receipt Date: 20230322
  Transmission Date: 20230418
  Serious: Yes (Hospitalization, Other)
  Sender: FDA-Public Use
  Company Number: US-TEVA-2023-US-2862307

PATIENT
  Age: 37 Year
  Sex: Female

DRUGS (5)
  1. IBUPROFEN [Suspect]
     Active Substance: IBUPROFEN
     Indication: Pericarditis
     Dosage: 1200 MILLIGRAM DAILY; 400 MG THREE TIMES DAILY
     Route: 065
     Dates: start: 201508
  2. PREDNISONE [Suspect]
     Active Substance: PREDNISONE
     Indication: Pericarditis
     Dosage: 20 MG
     Route: 065
     Dates: start: 201508
  3. COLCHICINE [Suspect]
     Active Substance: COLCHICINE
     Indication: Pericarditis
     Dosage: 1.2 MILLIGRAM DAILY; 0.6MG TWICE A DAY
     Route: 065
     Dates: start: 201508
  4. ANAKINRA [Suspect]
     Active Substance: ANAKINRA
     Indication: Pericarditis
     Route: 065
     Dates: start: 201609
  5. ANAKINRA [Suspect]
     Active Substance: ANAKINRA
     Dosage: DOSE REDUCED
     Route: 065

REACTIONS (3)
  - Steroid dependence [Unknown]
  - Rebound effect [Unknown]
  - Drug ineffective [Unknown]
